FAERS Safety Report 8537114-0 (Version None)
Quarter: 2012Q3

REPORT INFORMATION
  Report Type: 
  Country: None (occurrence: None)
  Receive Date: 20120725
  Receipt Date: 20120718
  Transmission Date: 20120928
  Serious: Yes (Hospitalization)
  Sender: FDA-Public Use
  Company Number: AT-PFIZER INC-2012174729

PATIENT
  Age: 80 Year
  Sex: Male
  Weight: 65 kg

DRUGS (17)
  1. TESTOVIRON [Concomitant]
     Indication: BLOOD FOLLICLE STIMULATING HORMONE DECREASED
  2. MAXI-KALZ [Concomitant]
     Indication: OSTEOPOROSIS
     Dosage: UNK
     Dates: start: 20030715
  3. LEVOTHYROXINE SODIUM [Concomitant]
     Indication: PRIMARY HYPOTHYROIDISM
  4. CONDROSULF [Concomitant]
     Indication: ESSENTIAL HYPERTENSION
     Dosage: UNK
     Dates: start: 20070813
  5. ATACAND HCT [Concomitant]
     Indication: ESSENTIAL HYPERTENSION
     Dosage: UNK
     Dates: start: 20070813
  6. ATACAND [Concomitant]
     Indication: ESSENTIAL HYPERTENSION
     Dosage: UNK
     Dates: start: 20070813
  7. AMLODIPINE [Concomitant]
     Indication: ESSENTIAL HYPERTENSION
     Dosage: UNK
     Dates: start: 20070813
  8. GENOTROPIN [Suspect]
     Indication: HYPOPITUITARISM
     Dosage: 0.1 MG/DAY, 7 INJECTIONS/WEEK
     Route: 058
     Dates: start: 20100208
  9. FOSAMAX [Concomitant]
     Indication: OSTEOPOROSIS
     Dosage: UNK
     Dates: start: 20070813
  10. LEVOTHYROXINE SODIUM [Concomitant]
     Indication: HYPOTHYROIDISM
     Dosage: UNK
     Dates: start: 20030701
  11. HYDROCORTONE [Concomitant]
     Indication: BLOOD CORTICOTROPHIN DECREASED
     Dosage: UNK
     Dates: start: 20030701
  12. LEVOTHYROXINE SODIUM [Concomitant]
     Indication: BLOOD THYROID STIMULATING HORMONE DECREASED
     Dosage: UNK
     Dates: start: 20070813
  13. DITROPAN [Concomitant]
     Dosage: UNK
     Dates: start: 20070813
  14. ASPIRIN [Concomitant]
     Indication: ESSENTIAL HYPERTENSION
     Dosage: UNK
     Dates: start: 20070813
  15. TESTOVIRON [Concomitant]
     Indication: BLOOD LUTEINISING HORMONE DECREASED
     Dosage: UNK
     Dates: start: 20030701
  16. HYDROCORTISONE [Concomitant]
     Indication: BLOOD CORTICOTROPHIN DECREASED
     Dosage: UNK
     Dates: start: 20070813
  17. CARVEDILOL [Concomitant]
     Indication: ESSENTIAL HYPERTENSION
     Dosage: UNK
     Dates: start: 20070813

REACTIONS (1)
  - PROSTHESIS IMPLANTATION [None]
